FAERS Safety Report 19918435 (Version 2)
Quarter: 2022Q1

REPORT INFORMATION
  Report Type: Spontaneous
  Country: FR (occurrence: FR)
  Receive Date: 20211004
  Receipt Date: 20220208
  Transmission Date: 20220423
  Serious: Yes (Hospitalization, Other)
  Sender: FDA-Public Use
  Company Number: None

PATIENT
  Age: 29 Year
  Sex: Male

DRUGS (4)
  1. SILDENAFIL CITRATE [Suspect]
     Active Substance: SILDENAFIL CITRATE
     Dosage: UNK
     Dates: start: 20200907, end: 20200907
  2. METHAMPHETAMINE [Suspect]
     Active Substance: METHAMPHETAMINE
     Dosage: UNK
     Dates: start: 20200907, end: 20200907
  3. ALCOHOL [Suspect]
     Active Substance: ALCOHOL
     Dosage: UNK
     Dates: start: 20200907, end: 20200907
  4. OXYBATE [Suspect]
     Active Substance: OXYBATE
     Dosage: UNK
     Dates: start: 20200906, end: 20200907

REACTIONS (15)
  - Tension headache [Recovered/Resolved]
  - Chest pain [Recovered/Resolved]
  - Drug abuse [Recovering/Resolving]
  - Malaise [Recovering/Resolving]
  - Loss of consciousness [Unknown]
  - Vomiting [Unknown]
  - Dizziness [Unknown]
  - Photophobia [Unknown]
  - Hyperhidrosis [Unknown]
  - Paraesthesia [Recovered/Resolved]
  - Abdominal pain [Unknown]
  - Agitation [Recovered/Resolved]
  - Pyrexia [Unknown]
  - Neck pain [Recovered/Resolved]
  - Electric shock sensation [Unknown]

NARRATIVE: CASE EVENT DATE: 20200906
